FAERS Safety Report 4377204-X (Version None)
Quarter: 2004Q2

REPORT INFORMATION
  Report Type: 
  Country: None (occurrence: None)
  Receive Date: 20040609
  Receipt Date: 20040225
  Transmission Date: 20050107
  Serious: No
  Sender: FDA-Public Use
  Company Number: 2004200912US

PATIENT
  Sex: Female

DRUGS (1)
  1. BEXTRA [Suspect]
     Indication: ARTHRITIS
     Dosage: 20 MG, QD, UNK
     Route: 065
     Dates: start: 20030201, end: 20031101

REACTIONS (2)
  - BLOOD POTASSIUM DECREASED [None]
  - MUSCLE STRAIN [None]
